FAERS Safety Report 22315939 (Version 1)
Quarter: 2023Q2

REPORT INFORMATION
  Report Type: Spontaneous
  Country: FR (occurrence: FR)
  Receive Date: 20230512
  Receipt Date: 20230512
  Transmission Date: 20230722
  Serious: Yes (Other)
  Sender: FDA-Public Use
  Company Number: FR-MLMSERVICE-20230505-4261936-1

PATIENT
  Age: 41 Year
  Sex: Female

DRUGS (2)
  1. BETAMETHASONE DIPROPIONATE [Suspect]
     Active Substance: BETAMETHASONE DIPROPIONATE
     Indication: Chronic cutaneous lupus erythematosus
     Dosage: 2?3 APPLICATIONS FOR APPROXIMATELY 8DAYS
     Route: 061
  2. HYDROXYCHLOROQUINE [Concomitant]
     Active Substance: HYDROXYCHLOROQUINE
     Indication: Chronic cutaneous lupus erythematosus
     Dosage: UNK

REACTIONS (2)
  - Central serous chorioretinopathy [Unknown]
  - Product use in unapproved indication [Unknown]
